FAERS Safety Report 10730107 (Version 1)
Quarter: 2015Q1

REPORT INFORMATION
  Report Type: Spontaneous
  Country: US (occurrence: US)
  Receive Date: 20150122
  Receipt Date: 20150122
  Transmission Date: 20150721
  Serious: Yes (Other)
  Sender: FDA-Public Use
  Company Number: US-TEVA-535843USA

PATIENT
  Age: 36 Year
  Sex: Female
  Weight: 77.18 kg

DRUGS (2)
  1. PARAGARD T 380A [Suspect]
     Active Substance: COPPER
     Indication: CONTRACEPTION
     Route: 015
     Dates: start: 20141010, end: 20141230
  2. FLONASE [Concomitant]
     Active Substance: FLUTICASONE PROPIONATE
     Indication: TINNITUS

REACTIONS (6)
  - Vaginal haemorrhage [Unknown]
  - Abdominal pain lower [Unknown]
  - Device expulsion [Recovered/Resolved]
  - Device dislocation [Recovered/Resolved]
  - Dizziness [Unknown]
  - Vaginal discharge [Unknown]

NARRATIVE: CASE EVENT DATE: 20141010
